FAERS Safety Report 7998900-9 (Version None)
Quarter: 2011Q4

REPORT INFORMATION
  Report Type: 
  Country: None (occurrence: None)
  Receive Date: 20111221
  Receipt Date: 20111214
  Transmission Date: 20120403
  Serious: Yes (Hospitalization)
  Sender: FDA-Public Use
  Company Number: NL-GLAXOSMITHKLINE-B0741568A

PATIENT
  Sex: Female
  Weight: 62 kg

DRUGS (2)
  1. PROMACTA [Suspect]
     Indication: THROMBOCYTOPENIA
     Dosage: 50MG PER DAY
     Route: 065
     Dates: start: 20110720, end: 20110728
  2. ORAL CONTRACEPTIVE [Concomitant]

REACTIONS (10)
  - VOMITING [None]
  - NIGHT SWEATS [None]
  - MALAISE [None]
  - NAUSEA [None]
  - HAEMATURIA [None]
  - HEADACHE [None]
  - RENAL FAILURE [None]
  - ANTIPHOSPHOLIPID SYNDROME [None]
  - ANGIOPATHY [None]
  - PARAESTHESIA [None]
